FAERS Safety Report 8595938-8 (Version None)
Quarter: 2012Q3

REPORT INFORMATION
  Report Type: 
  Country: None (occurrence: None)
  Receive Date: 20120815
  Receipt Date: 19900619
  Transmission Date: 20120928
  Serious: Yes (Death, Other)
  Sender: FDA-Public Use
  Company Number: US-ROCHE-1100453

PATIENT
  Age: 49 Year
  Sex: Male

DRUGS (2)
  1. MORPHINE [Concomitant]
  2. ACTIVASE [Suspect]
     Indication: PRODUCT USED FOR UNKNOWN INDICATION

REACTIONS (7)
  - VOMITING [None]
  - VENTRICULAR TACHYCARDIA [None]
  - NAUSEA [None]
  - DEATH [None]
  - CHEST PAIN [None]
  - RESTLESSNESS [None]
  - ATRIOVENTRICULAR BLOCK [None]
